FAERS Safety Report 14018147 (Version 1)
Quarter: 2017Q3

REPORT INFORMATION
  Report Type: Spontaneous
  Country: US (occurrence: None)
  Receive Date: 20170927
  Receipt Date: 20170927
  Transmission Date: 20171128
  Serious: Yes (Hospitalization)
  Sender: FDA-Public Use
  Company Number: None

PATIENT
  Age: 73 Year
  Sex: Male

DRUGS (1)
  1. MORPHINE [Suspect]
     Active Substance: MORPHINE
     Indication: PAIN
     Route: 048
     Dates: start: 20170825, end: 20170914

REACTIONS (4)
  - Delirium [None]
  - Confusional state [None]
  - Sedation [None]
  - Loss of consciousness [None]

NARRATIVE: CASE EVENT DATE: 20170913
